FAERS Safety Report 13606904 (Version 1)
Quarter: 2017Q2

REPORT INFORMATION
  Report Type: Spontaneous
  Country: US (occurrence: US)
  Receive Date: 20170602
  Receipt Date: 20170602
  Transmission Date: 20170830
  Serious: No
  Sender: FDA-Public Use
  Company Number: US-NOVEN PHARMACEUTICALS, INC.-US2016002660

PATIENT

DRUGS (4)
  1. DAYTRANA [Suspect]
     Active Substance: METHYLPHENIDATE
     Indication: ATTENTION DEFICIT/HYPERACTIVITY DISORDER
     Dosage: 20 MG, UNKNOWN
     Route: 062
     Dates: start: 201610, end: 201610
  2. CLONIDINE. [Concomitant]
     Active Substance: CLONIDINE
     Dosage: 0.2 MG, BEDTIME
  3. DAYTRANA [Suspect]
     Active Substance: METHYLPHENIDATE
     Dosage: 30 MG, UNKNOWN
     Route: 062
     Dates: start: 201610, end: 20161109
  4. DAYTRANA [Suspect]
     Active Substance: METHYLPHENIDATE
     Dosage: 20 MG, UNKNOWN
     Route: 062
     Dates: start: 20161109

REACTIONS (8)
  - Incorrect dose administered [Not Recovered/Not Resolved]
  - Product quality issue [Recovered/Resolved]
  - Product adhesion issue [Recovered/Resolved]
  - Drug ineffective [Not Recovered/Not Resolved]
  - Drug administration error [Recovered/Resolved]
  - Abnormal behaviour [Not Recovered/Not Resolved]
  - Wrong technique in product usage process [Recovered/Resolved]
  - Disturbance in attention [Not Recovered/Not Resolved]

NARRATIVE: CASE EVENT DATE: 2016
